FAERS Safety Report 24362059 (Version 2)
Quarter: 2024Q4

REPORT INFORMATION
  Report Type: Spontaneous
  Country: FR (occurrence: FR)
  Receive Date: 20240925
  Receipt Date: 20241206
  Transmission Date: 20250115
  Serious: Yes (Congenital Anomaly)
  Sender: TEVA
  Company Number: None

PATIENT
  Age: 0 Day
  Sex: Male
  Weight: 3.6 kg

DRUGS (2)
  1. PAROXETINE [Suspect]
     Active Substance: PAROXETINE
     Indication: Maternal exposure during pregnancy
     Dosage: PAROXETINE HYDROCHLORIDE ANHYDROUS
     Route: 064
     Dates: start: 20240722, end: 20240829
  2. ASPIRIN DL-LYSINE [Suspect]
     Active Substance: ASPIRIN DL-LYSINE
     Indication: Maternal exposure during pregnancy
     Route: 064
     Dates: start: 2024, end: 20240829

REACTIONS (2)
  - Neonatal pulmonary hypertension [Recovered/Resolved]
  - Foetal macrosomia [Not Recovered/Not Resolved]

NARRATIVE: CASE EVENT DATE: 20240829
